FAERS Safety Report 11474682 (Version 1)
Quarter: 2015Q3

REPORT INFORMATION
  Report Type: Spontaneous
  Country: US (occurrence: None)
  Receive Date: 20150902
  Receipt Date: 20150902
  Transmission Date: 20151125
  Serious: Yes (Hospitalization)
  Sender: FDA-Public Use
  Company Number: A-US2014-107117

PATIENT
  Age: 36 Year
  Sex: Female

DRUGS (3)
  1. VELETRI [Suspect]
     Active Substance: EPOPROSTENOL
     Indication: COR PULMONALE CHRONIC
     Dosage: 76 NG/KG, PER MIN
     Route: 042
     Dates: start: 2006
  2. PREDNISONE. [Concomitant]
     Active Substance: PREDNISONE
  3. OXYGEN. [Concomitant]
     Active Substance: OXYGEN

REACTIONS (6)
  - Catheter site haemorrhage [None]
  - Catheter site discharge [None]
  - Device related sepsis [None]
  - Staphylococcus test positive [None]
  - Catheter site infection [None]
  - Catheter site pain [None]

NARRATIVE: CASE EVENT DATE: 20141016
